FAERS Safety Report 7427350-9 (Version None)
Quarter: 2011Q2

REPORT INFORMATION
  Report Type: 
  Country: None (occurrence: None)
  Receive Date: 20110420
  Receipt Date: 20110413
  Transmission Date: 20111010
  Serious: Yes (Other)
  Sender: FDA-Public Use
  Company Number: RU-ELI_LILLY_AND_COMPANY-RU201103006412

PATIENT
  Age: 40 Year
  Sex: Female

DRUGS (4)
  1. BYETTA [Suspect]
     Dosage: 10 UG, BID
     Route: 058
     Dates: start: 20101201, end: 20110301
  2. DIABETON [Concomitant]
  3. GLUKOFAG [Concomitant]
  4. INSULIN [Concomitant]

REACTIONS (3)
  - DECREASED APPETITE [None]
  - GASTRITIS HAEMORRHAGIC [None]
  - OFF LABEL USE [None]
